FAERS Safety Report 10266111 (Version 1)
Quarter: 2014Q2

REPORT INFORMATION
  Report Type: Report from Study
  Country: DE (occurrence: DE)
  Receive Date: 20140627
  Receipt Date: 20140627
  Transmission Date: 20141212
  Serious: Yes (Other)
  Sender: FDA-Public Use
  Company Number: DE-BAXTER-2014BAX035654

PATIENT
  Sex: 0

DRUGS (5)
  1. ENDOXAN 1G [Suspect]
     Indication: TEMPORAL ARTERITIS
     Route: 042
  2. ENDOXAN [Suspect]
     Indication: TEMPORAL ARTERITIS
     Route: 048
  3. PREDNISOLONE [Suspect]
     Indication: TEMPORAL ARTERITIS
     Route: 065
  4. AZATHIOPRINE [Suspect]
     Indication: TEMPORAL ARTERITIS
     Route: 065
  5. METHOTREXATE [Suspect]
     Indication: TEMPORAL ARTERITIS
     Route: 065

REACTIONS (1)
  - Disease recurrence [Recovering/Resolving]
